FAERS Safety Report 12603805 (Version 1)
Quarter: 2016Q3

REPORT INFORMATION
  Report Type: Spontaneous
  Country: US (occurrence: US)
  Receive Date: 20160728
  Receipt Date: 20160728
  Transmission Date: 20161109
  Serious: No
  Sender: FDA-Public Use
  Company Number: US-MYLANLABS-2015M1047492

PATIENT
  Age: 40 Year
  Weight: 58.96 kg

DRUGS (16)
  1. DHEA [Concomitant]
     Active Substance: PRASTERONE
  2. FOLIC ACID. [Concomitant]
     Active Substance: FOLIC ACID
  3. PROBIOTICS                         /07325001/ [Concomitant]
     Active Substance: BIFIDOBACTERIUM LONGUM\LACTOBACILLUS ACIDOPHILUS\LACTOBACILLUS RHAMNOSUS
  4. LEVOTHYROXINE SODIUM TABLETS, USP [Suspect]
     Active Substance: LEVOTHYROXINE SODIUM
     Indication: HYPOTHYROIDISM
     Dosage: 50 ?G, QD
     Dates: start: 201411, end: 201512
  5. ENDOMETRIN [Concomitant]
     Active Substance: PROGESTERONE
  6. PROGESTERONE IN OIL [Concomitant]
  7. VITAMIN D                          /00107901/ [Concomitant]
     Active Substance: ERGOCALCIFEROL
  8. CETROTIDE                          /01453601/ [Concomitant]
  9. LEUPROLIDE                         /00726901/ [Concomitant]
  10. HCG [Concomitant]
     Active Substance: GONADOTROPHIN, CHORIONIC
  11. FOLLISTIM [Concomitant]
     Active Substance: FOLLITROPIN
  12. BABY ASPIRIN [Concomitant]
     Active Substance: ASPIRIN
  13. ESTRADIOL. [Concomitant]
     Active Substance: ESTRADIOL
  14. MENOPUR [Concomitant]
     Active Substance: FOLLICLE STIMULATING HORMONE BETA POLYPEPTIDE\LUTROPIN ALFA
  15. PRENATAL VITAMINS                  /02014401/ [Concomitant]
     Active Substance: VITAMINS
  16. BEE POLLEN [Concomitant]
     Active Substance: BEE POLLEN

REACTIONS (1)
  - Dizziness [Recovered/Resolved]

NARRATIVE: CASE EVENT DATE: 201511
